FAERS Safety Report 6035717-9 (Version None)
Quarter: 2009Q1

REPORT INFORMATION
  Report Type: 
  Country: None (occurrence: None)
  Receive Date: 20090113
  Receipt Date: 20090108
  Transmission Date: 20090719
  Serious: Yes (Other)
  Sender: FDA-Public Use
  Company Number: US-ABBOTT-09P-163-0496511-00

PATIENT
  Sex: Male
  Weight: 90.8 kg

DRUGS (10)
  1. HUMIRA [Suspect]
     Indication: RHEUMATOID ARTHRITIS
     Dates: start: 20071201, end: 20080201
  2. HUMIRA [Suspect]
     Dates: start: 20080301, end: 20080601
  3. HUMIRA [Suspect]
     Dates: start: 20080701, end: 20080901
  4. HUMIRA [Suspect]
     Dates: start: 20081001, end: 20081201
  5. HUMIRA [Suspect]
     Dates: start: 20081231
  6. HUMIRA [Suspect]
     Indication: ARTHRALGIA
     Dates: start: 20090107, end: 20090107
  7. COUMADIN [Concomitant]
     Indication: CARDIAC DISORDER
     Dates: start: 20080101
  8. COREG [Concomitant]
     Indication: CARDIAC DISORDER
  9. LANOXIN [Concomitant]
     Indication: CARDIAC DISORDER
  10. PREDNISONE TAB [Concomitant]
     Indication: RHEUMATOID ARTHRITIS
     Dates: start: 20090101

REACTIONS (4)
  - ARTHRALGIA [None]
  - ATRIAL FIBRILLATION [None]
  - KNEE ARTHROPLASTY [None]
  - RHEUMATOID NODULE REMOVAL [None]
